FAERS Safety Report 7422839-0 (Version None)
Quarter: 2011Q2

REPORT INFORMATION
  Report Type: 
  Country: None (occurrence: None)
  Receive Date: 20110419
  Receipt Date: 20110331
  Transmission Date: 20111010
  Serious: Yes (Hospitalization, Other)
  Sender: FDA-Public Use
  Company Number: US-BAYER-201041787NA

PATIENT
  Age: 56 Year
  Sex: Male
  Weight: 90.703 kg

DRUGS (62)
  1. TRASYLOL [Suspect]
     Dosage: 200 ML LOADING DOSE
     Route: 042
     Dates: start: 20050622
  2. PRAVASTATIN [Concomitant]
  3. LISINOPRIL [Concomitant]
  4. RED BLOOD CELLS [Concomitant]
     Dosage: 2 U, UNK
     Route: 042
     Dates: start: 20050622
  5. DOPAMINE HCL [Concomitant]
     Dosage: 2 MCG/KG/MINUTE
     Route: 042
     Dates: start: 20050622
  6. NORMAL SALINE [Concomitant]
     Dosage: UNK
     Route: 042
     Dates: start: 20050622
  7. CALCIUM [Concomitant]
     Dosage: 1000 MG
     Route: 042
     Dates: start: 20050622
  8. PHENYLEPHRINE HCL [Concomitant]
     Dosage: 50 MCG
     Route: 042
     Dates: start: 20050622
  9. ZANTAC [Concomitant]
  10. ACETYLSALICYLIC ACID SRT [Concomitant]
  11. OXYCODONE [Concomitant]
  12. FUROSEMIDE [Concomitant]
  13. AMLODIPINE [Concomitant]
  14. LINEZOLID [Concomitant]
  15. COLACE [Concomitant]
  16. NYSTATIN [Concomitant]
  17. VASOPRESSIN [Concomitant]
     Dosage: 2 U, Q1HR
     Route: 042
     Dates: start: 20050622
  18. MILRINONE [Concomitant]
     Dosage: 0.250 MCG/KG/MINUTE
     Route: 042
     Dates: start: 20050622
  19. PANCURONIUM BROMIDE [Concomitant]
     Dosage: 10.0 MG, UNK
     Route: 042
     Dates: start: 20050622
  20. CLINDAMYCIN [Concomitant]
     Dosage: 600 MG, UNK
     Route: 042
     Dates: start: 20050622
  21. CEFUROXIME [Concomitant]
     Dosage: 1.50 MG, UNK
     Route: 042
     Dates: start: 20050622
  22. ALBUMIN (HUMAN) [Concomitant]
     Dosage: 12.5 G, UNK
     Route: 042
     Dates: start: 20050622
  23. CALCIUM [Concomitant]
     Dosage: 500 MG
     Route: 042
     Dates: start: 20050622
  24. NOREPINEPHRINE BITARTRATE [Concomitant]
     Dosage: 0.05 MCG/KG/MINUTE
     Route: 042
     Dates: start: 20050622
  25. PROTAMINE SULFATE [Concomitant]
     Dosage: 400 MG, UNK
     Route: 042
     Dates: start: 20050622
  26. FLAGYL [Concomitant]
  27. COLCHICINE [Concomitant]
  28. DOXYCYCLINE [Concomitant]
  29. HYDRALAZINE [Concomitant]
  30. NORTRIPTYLINE [Concomitant]
  31. FRESH FROZEN PLASMA [Concomitant]
     Dosage: 4 U, UNK
     Route: 042
     Dates: start: 20050622
  32. FENTANYL [Concomitant]
     Dosage: 500.0 MCG
     Route: 042
     Dates: start: 20050622
  33. PROTAMINE SULFATE [Concomitant]
     Dosage: 50 MG, UNK
     Route: 042
     Dates: start: 20050622
  34. TRASYLOL [Suspect]
     Indication: HEART TRANSPLANT
     Dosage: 50 ML, Q1HR
     Route: 042
     Dates: start: 20050622, end: 20050622
  35. METHADONE [Concomitant]
  36. MAGNESIUM [Concomitant]
  37. PANCURONIUM BROMIDE [Concomitant]
     Dosage: 2.0 MG, UNK
     Route: 042
     Dates: start: 20050622
  38. LEVOFLOXACIN [Concomitant]
  39. AMBIEN [Concomitant]
  40. ALLOPURINOL [Concomitant]
  41. VICODIN [Concomitant]
  42. POTASSIUM CHLORIDE [Concomitant]
  43. SOTALOL [Concomitant]
  44. INSULIN [Concomitant]
     Dosage: 2 U, UNK
     Route: 058
     Dates: start: 20050622
  45. INSULIN [Concomitant]
     Dosage: 4 U, Q1HR
     Route: 042
     Dates: start: 20050622
  46. VASOPRESSIN [Concomitant]
     Dosage: 3 U Q1HR
     Route: 042
     Dates: start: 20050622
  47. HEPARIN [Concomitant]
     Dosage: 3500 U, UNK
     Route: 042
     Dates: start: 20050622
  48. SOLU-MEDROL [Concomitant]
     Dosage: 500 MG, UNK
     Route: 042
     Dates: start: 20050622
  49. MUPIROCIN [Concomitant]
  50. ACETAMINOPHEN [Concomitant]
  51. CARVEDILOL [Concomitant]
  52. PLATELETS [Concomitant]
     Dosage: 10 UNK, UNK
     Route: 042
     Dates: start: 20050622
  53. ISOPROTERENOL HCL [Concomitant]
     Dosage: 2.0 MCG/KG/MINUTE
     Route: 042
     Dates: start: 20050622
  54. MIDAZOLAM [Concomitant]
     Dosage: 8.0 MG, UNK
     Route: 042
     Dates: start: 20050622
  55. FENTANYL [Concomitant]
     Dosage: 250.0 MCG
     Dates: start: 20050622
  56. CALCIUM [Concomitant]
     Dosage: 500 MG, UNK
     Route: 042
     Dates: start: 20050622
  57. PROPOFOL [Concomitant]
     Dosage: 45 MCG/KG/MINUTE
     Route: 042
     Dates: start: 20050622
  58. PYRIMETHAMINE [Concomitant]
  59. BACLOFEN [Concomitant]
  60. FOLATE SODIUM [Concomitant]
  61. IRON SULFATETHIAMIN COMPOUND TAB [Concomitant]
  62. ZOSYN [Concomitant]

REACTIONS (11)
  - UNEVALUABLE EVENT [None]
  - RENAL IMPAIRMENT [None]
  - STRESS [None]
  - RENAL INJURY [None]
  - ANXIETY [None]
  - FEAR [None]
  - INJURY [None]
  - RENAL FAILURE [None]
  - EMOTIONAL DISTRESS [None]
  - PAIN [None]
  - DEPRESSION [None]
